FAERS Safety Report 6437577-0 (Version None)
Quarter: 2009Q4

REPORT INFORMATION
  Report Type: 
  Country: None (occurrence: None)
  Receive Date: 20091109
  Receipt Date: 20090930
  Transmission Date: 20100525
  Serious: Yes (Death)
  Sender: FDA-Public Use
  Company Number: 1000003158

PATIENT
  Age: 82 Year
  Sex: Male

DRUGS (1)
  1. ESCITALOPRAM [Suspect]
     Indication: MAJOR DEPRESSION

REACTIONS (2)
  - BLOOD DISORDER [None]
  - PLEURAL EFFUSION [None]
